FAERS Safety Report 26208388 (Version 1)
Quarter: 2025Q4

REPORT INFORMATION
  Report Type: Spontaneous
  Country: US (occurrence: US)
  Receive Date: 20251229
  Receipt Date: 20251229
  Transmission Date: 20260117
  Serious: No
  Sender: ROCHE
  Company Number: US-ROCHE-10000468817

PATIENT
  Sex: Female

DRUGS (6)
  1. XOLAIR PFS [Suspect]
     Active Substance: OMALIZUMAB
     Indication: Rhinitis
     Route: 058
  2. XOLAIR PFS [Suspect]
     Active Substance: OMALIZUMAB
  3. ALBUTEROL SU POW [Concomitant]
  4. ALLEGRA ALLE TAB 180 mg [Concomitant]
  5. ARMOUR THYRO TAB 240 MG [Concomitant]
  6. CALCIUM TAB 280 MG [Concomitant]

REACTIONS (2)
  - Off label use [Unknown]
  - Pruritus [Unknown]
